FAERS Safety Report 15989857 (Version 2)
Quarter: 2019Q2

REPORT INFORMATION
  Report Type: Report from Study
  Country: US (occurrence: US)
  Receive Date: 20190221
  Receipt Date: 20190507
  Transmission Date: 20190711
  Serious: Yes (Hospitalization, Other)
  Sender: FDA-Public Use
  Company Number: US-ROCHE-2270552

PATIENT
  Age: 53 Year
  Sex: Female
  Weight: 57.2 kg

DRUGS (1)
  1. OCREVUS [Suspect]
     Active Substance: OCRELIZUMAB
     Indication: PROGRESSIVE MULTIPLE SCLEROSIS
     Dosage: INFUSE 300MG VIAL DAY 1 AND THEN DAY 15?SUBSEQUENT DOSES ON 11/MAY/2018, 02/JUN/2018.
     Route: 042
     Dates: start: 201712

REACTIONS (1)
  - Urinary tract infection [Recovered/Resolved]

NARRATIVE: CASE EVENT DATE: 20190129
